FAERS Safety Report 18189004 (Version 2)
Quarter: 2021Q3

REPORT INFORMATION
  Report Type: Report from Study
  Country: GB (occurrence: GB)
  Receive Date: 20200824
  Receipt Date: 20210806
  Transmission Date: 20211014
  Serious: Yes (Death, Hospitalization, Other)
  Sender: FDA-Public Use
  Company Number: GB-JNJFOC-20200821838

PATIENT
  Sex: Male
  Weight: 143 kg

DRUGS (3)
  1. COCODAMOL [Concomitant]
     Active Substance: ACETAMINOPHEN\CODEINE PHOSPHATE
     Route: 065
     Dates: start: 20131001
  2. USTEKINUMAB [Suspect]
     Active Substance: USTEKINUMAB
     Indication: PSORIASIS
     Route: 058
     Dates: start: 20160711, end: 20200717
  3. SALBUTAMOL [Concomitant]
     Active Substance: ALBUTEROL
     Route: 065
     Dates: start: 20160101

REACTIONS (7)
  - Toxicity to various agents [Unknown]
  - Non-small cell lung cancer [Recovered/Resolved]
  - Nausea [Unknown]
  - Death [Fatal]
  - Neutropenic sepsis [Unknown]
  - Vomiting [Unknown]
  - Catheter site infection [Unknown]

NARRATIVE: CASE EVENT DATE: 20200701
